FAERS Safety Report 6759973-4 (Version None)
Quarter: 2010Q2

REPORT INFORMATION
  Report Type: 
  Country: None (occurrence: None)
  Receive Date: 20100608
  Receipt Date: 20100526
  Transmission Date: 20101027
  Serious: Yes (Hospitalization)
  Sender: FDA-Public Use
  Company Number: PHFR2010GB00577

PATIENT
  Sex: Male
  Weight: 78 kg

DRUGS (7)
  1. CLOZARIL [Suspect]
     Indication: SCHIZOPHRENIA
     Dosage: 600 MG/DAY
     Route: 048
     Dates: start: 20011023, end: 20100422
  2. LYMECYCLINE [Suspect]
     Indication: ACNE
     Dosage: 408 MG/DAY
     Route: 048
  3. METFORMIN HCL [Concomitant]
     Dosage: 500 MG, BID
     Route: 048
  4. ZOPICLONE [Concomitant]
     Dosage: 7.5 MG NOCTE
     Route: 048
  5. OMEPRAZOLE [Concomitant]
     Dosage: 20 MG MANE
     Route: 048
  6. VALPROATE SODIUM [Concomitant]
     Dosage: 300 MG, BID
     Route: 048
  7. RISPERIDONE [Concomitant]
     Dosage: 3 MG, BID
     Route: 048

REACTIONS (4)
  - MENTAL IMPAIRMENT [None]
  - NEUTROPENIA [None]
  - NEUTROPHIL COUNT DECREASED [None]
  - WHITE BLOOD CELL COUNT DECREASED [None]
